FAERS Safety Report 13275424 (Version 1)
Quarter: 2017Q1

REPORT INFORMATION
  Report Type: Report from Study
  Country: US (occurrence: DE)
  Receive Date: 20170228
  Receipt Date: 20170228
  Transmission Date: 20170428
  Serious: Yes (Death)
  Sender: FDA-Public Use
  Company Number: DE-TEVA-744716ACC

PATIENT

DRUGS (5)
  1. IBRUTINIB [Concomitant]
     Active Substance: IBRUTINIB
     Indication: CHRONIC LYMPHOCYTIC LEUKAEMIA
     Dosage: (6 CYCLES AS INDUCTION)
     Route: 065
  2. IBRUTINIB [Concomitant]
     Active Substance: IBRUTINIB
     Dosage: (EVERY 3 MONTHS FOR UP TO 24 MONTHS OR UNTIL THEY ACHIEVED A CR AS MAINTENANCE THERAPY)
     Route: 065
  3. OBINUTUZUMAB [Concomitant]
     Active Substance: OBINUTUZUMAB
     Indication: CHRONIC LYMPHOCYTIC LEUKAEMIA
     Dosage: (6 CYCLES AS INDUCTION)
     Route: 065
  4. OBINUTUZUMAB [Concomitant]
     Active Substance: OBINUTUZUMAB
     Dosage: (EVERY 3 MONTHS FOR UP TO 24 MONTHS OR UNTIL THEY ACHIEVED A CR AS MAINTENANCE THERAPY)
     Route: 065
  5. TREANDA [Suspect]
     Active Substance: BENDAMUSTINE HYDROCHLORIDE
     Indication: CHRONIC LYMPHOCYTIC LEUKAEMIA
     Dosage: (2 CYCLES ON DAYS 1 AND 2 PRIOR TO INDUCTION)
     Route: 042

REACTIONS (2)
  - Immune system disorder [Fatal]
  - Duodenitis [Fatal]
